FAERS Safety Report 7152909-6 (Version None)
Quarter: 2010Q4

REPORT INFORMATION
  Report Type: 
  Country: None (occurrence: None)
  Receive Date: 20101213
  Receipt Date: 20101129
  Transmission Date: 20110411
  Serious: Yes (Other)
  Sender: FDA-Public Use
  Company Number: PHHY2010US81306

PATIENT
  Sex: Female

DRUGS (2)
  1. FEMARA [Suspect]
     Dosage: UNK
  2. GENTEAL [Concomitant]
     Indication: DRY EYE
     Dosage: UNK

REACTIONS (6)
  - ACOUSTIC NEUROMA [None]
  - BRAIN OPERATION [None]
  - CORNEAL REFLEX DECREASED [None]
  - DRY EYE [None]
  - PUNCTAL PLUG INSERTION [None]
  - VIITH NERVE PARALYSIS [None]
